FAERS Safety Report 5508663-4 (Version None)
Quarter: 2007Q4

REPORT INFORMATION
  Report Type: 
  Country: None (occurrence: None)
  Receive Date: 20071105
  Receipt Date: 20071019
  Transmission Date: 20080405
  Serious: Yes (Hospitalization)
  Sender: FDA-Public Use
  Company Number: DSA_30810_2007

PATIENT
  Sex: Female

DRUGS (1)
  1. DILTIAZEM HYDROCHLORIDE [Suspect]
     Indication: HYPERTENSIVE CARDIOMEGALY
     Dosage: 120 MG QD ORAL;  A FEW YEARS
     Route: 048

REACTIONS (4)
  - ANAL FISSURE [None]
  - ANAL SPASM [None]
  - ANAL STENOSIS [None]
  - HYPOKALAEMIA [None]
